FAERS Safety Report 9855467 (Version 1)
Quarter: 2014Q1

REPORT INFORMATION
  Report Type: Spontaneous
  Country: US (occurrence: None)
  Receive Date: 20140129
  Receipt Date: 20140129
  Transmission Date: 20141002
  Serious: Yes (Life-Threatening, Hospitalization, Disabling)
  Sender: FDA-Public Use
  Company Number: None

PATIENT
  Age: 70 Year
  Sex: Male
  Weight: 60.6 kg

DRUGS (9)
  1. XARELTO [Suspect]
     Indication: ATRIAL FIBRILLATION
     Route: 048
  2. AMIODARONE [Concomitant]
  3. SINEMET [Concomitant]
  4. CALCIUM+D [Concomitant]
  5. LIPITOR [Concomitant]
  6. EUCERIN CREAM [Concomitant]
  7. SYNTHROID [Concomitant]
  8. MIRALAX [Concomitant]
  9. ERYTHROMYCIN [Concomitant]

REACTIONS (1)
  - Cerebral haemorrhage [None]
